FAERS Safety Report 6315719-5 (Version None)
Quarter: 2009Q3

REPORT INFORMATION
  Report Type: 
  Country: None (occurrence: None)
  Receive Date: 20090818
  Receipt Date: 20090805
  Transmission Date: 20100115
  Serious: Yes (Hospitalization)
  Sender: FDA-Public Use
  Company Number: 238704K09USA

PATIENT
  Age: 53 Year
  Sex: Female

DRUGS (2)
  1. REBIF [Suspect]
     Indication: MULTIPLE SCLEROSIS
     Dosage: 22 MCG, 3 IN 1 WEEKS, SUBCUTANEOUS
     Route: 058
     Dates: start: 20090714
  2. SALSALATE (SALSALATE) [Suspect]
     Indication: RHEUMATOID ARTHRITIS
     Dates: start: 20090715, end: 20090701

REACTIONS (14)
  - ABDOMINAL PAIN LOWER [None]
  - ASTHENIA [None]
  - ATELECTASIS [None]
  - DIARRHOEA [None]
  - DIVERTICULUM [None]
  - GASTRITIS [None]
  - HAEMATOCHEZIA [None]
  - HAEMOPTYSIS [None]
  - INFLUENZA LIKE ILLNESS [None]
  - OESOPHAGITIS [None]
  - PLEURAL EFFUSION [None]
  - PRODUCTIVE COUGH [None]
  - PYREXIA [None]
  - RECTAL HAEMORRHAGE [None]
